FAERS Safety Report 10918213 (Version 1)
Quarter: 2015Q1

REPORT INFORMATION
  Report Type: Spontaneous
  Country: US (occurrence: US)
  Receive Date: 20150316
  Receipt Date: 20150316
  Transmission Date: 20150721
  Serious: No
  Sender: FDA-Public Use
  Company Number: US-GALDERMA-US14003587

PATIENT
  Age: 62 Year
  Sex: Female

DRUGS (5)
  1. CALCIUM WITH MAGNESIUM [Concomitant]
     Dosage: 1000MG DAILY
  2. BIOTIN [Concomitant]
     Active Substance: BIOTIN
     Dosage: 5MG DAILY
  3. VITAMIN D3 [Concomitant]
     Active Substance: CHOLECALCIFEROL
     Dosage: 2000MG DAILY
  4. VITAMIN C [Concomitant]
     Active Substance: ASCORBIC ACID
     Dosage: 1000MG DAILY
  5. TRI-LUMA [Suspect]
     Active Substance: FLUOCINOLONE ACETONIDE\HYDROQUINONE\TRETINOIN
     Indication: LENTIGO
     Route: 061
     Dates: start: 20140818, end: 20140918

REACTIONS (7)
  - Erythema [Not Recovered/Not Resolved]
  - Product use issue [Recovered/Resolved]
  - Incorrect product storage [Not Recovered/Not Resolved]
  - Rash macular [Not Recovered/Not Resolved]
  - Skin exfoliation [Not Recovered/Not Resolved]
  - Drug ineffective for unapproved indication [Not Recovered/Not Resolved]
  - Skin burning sensation [Recovered/Resolved]

NARRATIVE: CASE EVENT DATE: 201408
